FAERS Safety Report 19807774 (Version 1)
Quarter: 2021Q3

REPORT INFORMATION
  Report Type: Spontaneous
  Country: US (occurrence: US)
  Receive Date: 20210907
  Receipt Date: 20210907
  Transmission Date: 20211014
  Serious: Yes (Hospitalization)
  Sender: FDA-Public Use
  Company Number: None

PATIENT
  Age: 36 Year
  Sex: Male

DRUGS (1)
  1. HUMIRA [Suspect]
     Active Substance: ADALIMUMAB
     Dosage: OTHER DOSE:PEN;OTHER FREQUENCY PEN :OTHER;?
     Route: 058
     Dates: start: 201801

REACTIONS (2)
  - Musculoskeletal stiffness [None]
  - Bone contusion [None]

NARRATIVE: CASE EVENT DATE: 20210711
